FAERS Safety Report 4908434-3 (Version None)
Quarter: 2006Q1

REPORT INFORMATION
  Report Type: 
  Country: None (occurrence: None)
  Receive Date: 20060210
  Receipt Date: 20060203
  Transmission Date: 20060701
  Serious: Yes (Hospitalization, Other)
  Sender: FDA-Public Use
  Company Number: ES-BRISTOL-MYERS SQUIBB COMPANY-13272372

PATIENT
  Age: 29 Year
  Sex: Female
  Weight: 41 kg

DRUGS (8)
  1. EFAVIRENZ [Suspect]
     Indication: HIV INFECTION
     Dosage: STOPPED NOV-2003 RESTARTED DEC-2003 AND STOPPED FEB-2004
     Dates: start: 20030901, end: 20040201
  2. ZIDOVUDINE [Suspect]
     Indication: HIV INFECTION
     Dosage: STOPPED NOV-2003 RESTARTED DEC-2003 AND STOPPED FEB-2004
     Dates: start: 20030901, end: 20040201
  3. LAMIVUDINE [Suspect]
     Indication: HIV INFECTION
     Dosage: STOPPED NOV-2003 RESTARTED DEC-2003 AND STOPPED FEB-2004
     Dates: start: 20030901, end: 20040201
  4. RIFAMPICIN [Concomitant]
     Indication: TUBERCULOSIS
     Dates: start: 20030101
  5. ISONIAZID [Concomitant]
     Indication: TUBERCULOSIS
     Dates: start: 20030101
  6. PYRAZINAMIDE [Concomitant]
     Indication: TUBERCULOSIS
     Dates: start: 20030101
  7. COTRIM [Concomitant]
     Indication: PROPHYLAXIS
     Dates: start: 20030101
  8. METOCLOPRAMIDE [Concomitant]
     Indication: NAUSEA
     Dates: end: 20031101

REACTIONS (6)
  - BRADYPHRENIA [None]
  - CATATONIA [None]
  - CEREBELLAR SYNDROME [None]
  - CONFUSIONAL STATE [None]
  - DYSARTHRIA [None]
  - VOMITING [None]
